FAERS Safety Report 26027379 (Version 1)
Quarter: 2025Q4

REPORT INFORMATION
  Report Type: Spontaneous
  Country: EU (occurrence: EU)
  Receive Date: 20251111
  Receipt Date: 20251111
  Transmission Date: 20260117
  Serious: Yes (Life-Threatening, Other)
  Sender: GRIFOLS
  Company Number: EU-IGSA-BIG0039201

PATIENT
  Age: 62 Year
  Sex: Male

DRUGS (4)
  1. GAMUNEX [Suspect]
     Active Substance: HUMAN IMMUNOGLOBULIN G
     Indication: Immunodeficiency common variable
     Dosage: 40 GRAM
     Route: 042
     Dates: start: 20250915
  2. AMLODIPINE BESYLATE\OLMESARTAN MEDOXOMIL [Concomitant]
     Active Substance: AMLODIPINE BESYLATE\OLMESARTAN MEDOXOMIL
     Dosage: UNK, QD
  3. METFORMIN [Concomitant]
     Active Substance: METFORMIN HYDROCHLORIDE
     Dosage: 850 MILLIGRAM, BID
  4. FLEBOGAMMA [Concomitant]
     Active Substance: HUMAN IMMUNOGLOBULIN G
     Dosage: 400 MILLIGRAM/KILOGRAM, Q.4WK.

REACTIONS (5)
  - Rash erythematous [Recovered/Resolved]
  - Urticaria [Recovered/Resolved]
  - Ear inflammation [Recovered/Resolved]
  - Pruritus [Recovered/Resolved]
  - Ear pain [Recovered/Resolved]

NARRATIVE: CASE EVENT DATE: 20251017
